FAERS Safety Report 5129631-0 (Version None)
Quarter: 2006Q4

REPORT INFORMATION
  Report Type: 
  Country: None (occurrence: None)
  Receive Date: 20061012
  Receipt Date: 20060929
  Transmission Date: 20070319
  Serious: Yes (Other)
  Sender: FDA-Public Use
  Company Number: 2006119421

PATIENT
  Age: 65 Year
  Sex: Male
  Weight: 79.3795 kg

DRUGS (5)
  1. DILANTIN [Suspect]
     Indication: CONVULSION
     Dosage: 400 MG (200 MG, 2 IN 1 D)
     Dates: start: 20010906
  2. ATENOLOL [Concomitant]
  3. FUROSEMIDE [Concomitant]
  4. DIGOXIN [Concomitant]
  5. COUMADIN [Concomitant]

REACTIONS (3)
  - HEARING IMPAIRED [None]
  - MYOPATHY [None]
  - NEUROPATHY [None]
